FAERS Safety Report 13169765 (Version 1)
Quarter: 2017Q1

REPORT INFORMATION
  Report Type: Report from Study
  Country: US (occurrence: US)
  Receive Date: 20170201
  Receipt Date: 20170201
  Transmission Date: 20170428
  Serious: Yes (Other)
  Sender: FDA-Public Use
  Company Number: US-AMGEN-USASL2017014207

PATIENT
  Age: 62 Year
  Sex: Female

DRUGS (1)
  1. REPATHA [Suspect]
     Active Substance: EVOLOCUMAB
     Indication: PRODUCT USED FOR UNKNOWN INDICATION
     Dosage: 140 MG, (TWICE PER MONTH)
     Route: 065
     Dates: start: 201601

REACTIONS (3)
  - Lung infection [Unknown]
  - Viral infection [Not Recovered/Not Resolved]
  - Rhinorrhoea [Unknown]
